FAERS Safety Report 6456401-3 (Version None)
Quarter: 2009Q4

REPORT INFORMATION
  Report Type: 
  Country: None (occurrence: None)
  Receive Date: 20091125
  Receipt Date: 20091116
  Transmission Date: 20100525
  Serious: Yes (Death, Hospitalization, Other)
  Sender: FDA-Public Use
  Company Number: PHHY2009BR50286

PATIENT
  Sex: Male

DRUGS (7)
  1. FORASEQ [Suspect]
     Indication: EMPHYSEMA
     Dosage: TWICE A DAY IN THE MORNING AND AT NIGHT
  2. FORASEQ [Suspect]
     Indication: BRONCHITIS CHRONIC
     Dosage: UNK
  3. CAPTOPRIL [Concomitant]
     Indication: HYPERTENSION
  4. FUROSEMIDE [Concomitant]
     Indication: POLYURIA
  5. DIGOXIN [Concomitant]
     Indication: CARDIAC DISORDER
  6. ANCORON [Concomitant]
     Indication: CARDIAC DISORDER
  7. SPIRIVA [Concomitant]
     Indication: DYSPNOEA

REACTIONS (8)
  - ASTHENIA [None]
  - CHRONIC OBSTRUCTIVE PULMONARY DISEASE [None]
  - DYSPNOEA [None]
  - HYPERTENSION [None]
  - LUNG INFECTION [None]
  - PNEUMONIA BACTERIAL [None]
  - SEPSIS [None]
  - VENOUS OCCLUSION [None]
